FAERS Safety Report 9013900 (Version 1)
Quarter: 2013Q1

REPORT INFORMATION
  Report Type: Spontaneous
  Country: US (occurrence: None)
  Receive Date: 20130109
  Receipt Date: 20130109
  Transmission Date: 20140127
  Serious: Yes (Life-Threatening)
  Sender: FDA-Public Use
  Company Number: None

PATIENT
  Age: 53 Year
  Sex: Male
  Weight: 61.24 kg

DRUGS (1)
  1. NEUPRO [Suspect]
     Indication: PARKINSON^S DISEASE
     Route: 062
     Dates: start: 20110401, end: 20121207

REACTIONS (13)
  - Sleep attacks [None]
  - Somnambulism [None]
  - Road traffic accident [None]
  - Insomnia [None]
  - Personality change [None]
  - Mood swings [None]
  - Anxiety [None]
  - Irritability [None]
  - Logorrhoea [None]
  - Grandiosity [None]
  - Euphoric mood [None]
  - Mania [None]
  - Obsessive-compulsive disorder [None]
